FAERS Safety Report 18054891 (Version 3)
Quarter: 2021Q1

REPORT INFORMATION
  Report Type: Spontaneous
  Country: GB (occurrence: GB)
  Receive Date: 20200722
  Receipt Date: 20210203
  Transmission Date: 20210419
  Serious: Yes (Hospitalization, Other)
  Sender: FDA-Public Use
  Company Number: GB-MYLANLABS-2020M1064955

PATIENT
  Age: 81 Year
  Sex: Male
  Weight: 89 kg

DRUGS (11)
  1. BUDICORT [Concomitant]
     Indication: ASTHMA
     Dosage: UNK
     Route: 065
  2. MONOMIL [Interacting]
     Active Substance: ISOSORBIDE MONONITRATE
     Indication: ANGINA PECTORIS
     Dosage: 30 MILLIGRAM, DAILY, OVER 2 YEARS AGO
     Route: 065
  3. BUDESONIDE. [Concomitant]
     Active Substance: BUDESONIDE
     Indication: ASTHMA
     Dosage: UNK
     Route: 065
  4. TILDIEM [Interacting]
     Active Substance: DILTIAZEM HYDROCHLORIDE
     Indication: PROSTATOMEGALY
     Dosage: 200 MILLIGRAM, DAILY
     Route: 065
  5. SYMBICORT [Concomitant]
     Active Substance: BUDESONIDE\FORMOTEROL FUMARATE DIHYDRATE
     Indication: ASTHMA
     Dosage: 100/6 MCG
     Route: 065
  6. XATRAL                             /00975301/ [Interacting]
     Active Substance: ALFUZOSIN
     Indication: PROSTATOMEGALY
     Dosage: 200 MILLIGRAM, DAILY, OVER 2 YEARS AGO
     Route: 065
  7. VENTOLIN [Concomitant]
     Active Substance: ALBUTEROL SULFATE
     Indication: ASTHMA
     Dosage: UNK UNK, PRN
     Route: 065
  8. MONOMIL XL [Interacting]
     Active Substance: ISOSORBIDE MONONITRATE
     Indication: ANGINA PECTORIS
     Dosage: 30 MILLIGRAM, DAILY, OVER 2 YEARS AGO
     Route: 065
  9. MONOMIL XL [Interacting]
     Active Substance: ISOSORBIDE MONONITRATE
     Dosage: 60 MILLIGRAM, QD
     Route: 065
     Dates: start: 2020
  10. SIMVASTATIN. [Concomitant]
     Active Substance: SIMVASTATIN
     Indication: ANGINA PECTORIS
     Dosage: UNK
     Route: 065
  11. ALFUZOSIN [Suspect]
     Active Substance: ALFUZOSIN
     Indication: PROSTATOMEGALY
     Dosage: 200 MILLIGRAM, DAILY, OVER 2 YEARS AGO
     Route: 065

REACTIONS (3)
  - Potentiating drug interaction [Recovered/Resolved]
  - Syncope [Recovered/Resolved]
  - Orthostatic hypotension [Recovered/Resolved]
